FAERS Safety Report 13705192 (Version 1)
Quarter: 2017Q2

REPORT INFORMATION
  Report Type: Spontaneous
  Country: US (occurrence: US)
  Receive Date: 20170629
  Receipt Date: 20170629
  Transmission Date: 20170830
  Serious: Yes (Disabling, Other)
  Sender: FDA-Public Use
  Company Number: None

PATIENT
  Age: 65 Year
  Sex: Male
  Weight: 81.19 kg

DRUGS (2)
  1. GADAVIST [Suspect]
     Active Substance: GADOBUTROL
  2. LOTREL [Concomitant]
     Active Substance: AMLODIPINE BESYLATE\BENAZEPRIL HYDROCHLORIDE

REACTIONS (8)
  - Disturbance in attention [None]
  - Myalgia [None]
  - Decreased appetite [None]
  - Paraesthesia [None]
  - Arthralgia [None]
  - Fatigue [None]
  - Abdominal pain [None]
  - Ocular hyperaemia [None]

NARRATIVE: CASE EVENT DATE: 20170320
